FAERS Safety Report 8301440-0 (Version None)
Quarter: 2012Q2

REPORT INFORMATION
  Report Type: 
  Country: None (occurrence: None)
  Receive Date: 20120420
  Receipt Date: 20120405
  Transmission Date: 20120825
  Serious: Yes (Death, Other)
  Sender: FDA-Public Use
  Company Number: DE-ROCHE-1058349

PATIENT
  Sex: Female

DRUGS (3)
  1. METHOTREXATE [Concomitant]
     Indication: RHEUMATOID ARTHRITIS
     Dates: start: 20061001
  2. SULFASALAZINA [Concomitant]
     Indication: RHEUMATOID ARTHRITIS
     Dates: start: 20080501
  3. ACTEMRA [Suspect]
     Indication: RHEUMATOID ARTHRITIS
     Dates: start: 20100401

REACTIONS (5)
  - HYPOKALAEMIA [None]
  - CEREBROVASCULAR INSUFFICIENCY [None]
  - ARRHYTHMIA [None]
  - CARDIOVASCULAR INSUFFICIENCY [None]
  - DEATH [None]
